FAERS Safety Report 6615961-X (Version None)
Quarter: 2010Q1

REPORT INFORMATION
  Report Type: 
  Country: None (occurrence: None)
  Receive Date: 20100305
  Receipt Date: 20100301
  Transmission Date: 20100710
  Serious: Yes (Hospitalization)
  Sender: FDA-Public Use
  Company Number: A0847620A

PATIENT
  Age: 64 Year
  Sex: Female
  Weight: 113.6 kg

DRUGS (1)
  1. AVANDIA [Suspect]
     Route: 048
     Dates: start: 19920101, end: 20070101

REACTIONS (1)
  - RENAL FAILURE [None]
